FAERS Safety Report 24888066 (Version 2)
Quarter: 2025Q1

REPORT INFORMATION
  Report Type: Report from Study
  Country: US (occurrence: US)
  Receive Date: 20250127
  Receipt Date: 20250303
  Transmission Date: 20250409
  Serious: Yes (Hospitalization, Other)
  Sender: ACADIA PHARMACEUTICALS
  Company Number: US-ACADIA PHARMACEUTICALS INC.-ACA-2025-PIM-000441

PATIENT
  Age: 82 Year
  Sex: Male

DRUGS (24)
  1. NUPLAZID [Suspect]
     Active Substance: PIMAVANSERIN TARTRATE
     Indication: Parkinson^s disease
     Dosage: 34 MILLIGRAM, QD
     Route: 048
     Dates: start: 20230413
  2. NUPLAZID [Suspect]
     Active Substance: PIMAVANSERIN TARTRATE
     Indication: Hallucination
  3. TAMSULOSIN [Concomitant]
     Active Substance: TAMSULOSIN
  4. LEVOTHYROXINE [Concomitant]
     Active Substance: LEVOTHYROXINE
  5. CARBIDOPA\LEVODOPA [Concomitant]
     Active Substance: CARBIDOPA\LEVODOPA
  6. MIRTAZAPINE [Concomitant]
     Active Substance: MIRTAZAPINE
  7. RIVASTIGMINE [Concomitant]
     Active Substance: RIVASTIGMINE
  8. CIMETIDINE [Concomitant]
     Active Substance: CIMETIDINE
  9. SINEMET [Concomitant]
     Active Substance: CARBIDOPA\LEVODOPA
     Dosage: 25-250 MG, QID (TAKE 1 TABLET BY MOUTH IN THE MORNING AND 1 TABLET AT NOON AND 1 TABLET IN THE EVENI
     Route: 048
  10. COMTAN [Concomitant]
     Active Substance: ENTACAPONE
     Dosage: 200 MILLIGRAM, QID (TAKE 1 TABLET (200MG TOTAL) BY MOUTH IN THE MORNING AND 1 TABLET (200 MG TOTAL)
     Route: 048
  11. EQUATE PAIN RELIEVER [Concomitant]
     Dosage: 1000 MILLIGRAM, TID (TAKE 1,000 MG BY MOUTH IN THE MORNING AND 1,000 MG AT NOON AND 1,000 MG IN THE
     Route: 048
  12. PEPCID [Concomitant]
     Active Substance: FAMOTIDINE
     Dosage: 40 MILLIGRAM, QD (TAKE 1 TABLET BY MOUTH AT BEDTIME ONCE DAILY FOR 90 DAYS)
     Route: 048
  13. LACTULOSE [Concomitant]
     Active Substance: LACTULOSE
     Indication: Constipation
     Route: 048
  14. SYNTHROID [Concomitant]
     Active Substance: LEVOTHYROXINE SODIUM
     Dosage: 88 MICROGRAM, QD TAKE 88 MCG BY MOUTH 1 (ONE) TIME EACH DAY
     Route: 048
  15. REMERON [Concomitant]
     Active Substance: MIRTAZAPINE
     Indication: Anxiety
     Dosage: 30 MILLIGRAM, QD TAKE 1 TABLET (30 MG TOTAL) BY MOUTH EVERY NIGHT (DISPENSE 30 TABLETS AND REFILL 11
     Route: 048
  16. REMERON [Concomitant]
     Active Substance: MIRTAZAPINE
     Indication: Insomnia
  17. REMERON [Concomitant]
     Active Substance: MIRTAZAPINE
     Indication: Appetite disorder
  18. EXELON [Concomitant]
     Active Substance: RIVASTIGMINE TARTRATE
     Dosage: 4.5 MILLIGRAM, BID TAKE 1 CAPSULE (4.5 MG TOTAL) BY MOUTH IN THE MORNING AND 1 CAPSULE (4.5 MG TOTAL
     Route: 048
  19. TIROSINT [Concomitant]
     Active Substance: LEVOTHYROXINE SODIUM
     Route: 048
     Dates: end: 20240903
  20. FLOMAX [Concomitant]
     Active Substance: TAMSULOSIN HYDROCHLORIDE
     Dosage: 0.4 MILLIGRAM, QD TAKE 0.4 MG BY MOUTH 1 (ONE) TIME EACH DAY
     Route: 048
     Dates: end: 20240903
  21. XEOMIN [Concomitant]
     Active Substance: INCOBOTULINUMTOXINA
     Route: 030
     Dates: start: 20241203
  22. INBRIJA [Concomitant]
     Active Substance: LEVODOPA
  23. DESYREL [Concomitant]
     Active Substance: TRAZODONE HYDROCHLORIDE
     Indication: Insomnia
     Dosage: 50 MILLIGRAM, QD (AT BEDTIME) TAKE 1 TABLET 50 MG TOTAL BY MOUTH AT BEDTIME IF NEEDED. MAY REPEAT ON
     Route: 048
     Dates: start: 20241119
  24. MELATONIN [Concomitant]
     Active Substance: MELATONIN

REACTIONS (18)
  - Speech disorder [Recovered/Resolved]
  - Parkinson^s disease [Unknown]
  - Hip fracture [Unknown]
  - Hallucination [Unknown]
  - Hallucinations, mixed [Unknown]
  - Hallucination, visual [Unknown]
  - Sleep disorder [Unknown]
  - Condition aggravated [Unknown]
  - Tremor [Unknown]
  - Decreased appetite [Unknown]
  - Sleep terror [Unknown]
  - Insomnia [Unknown]
  - Fatigue [Unknown]
  - Anxiety [Unknown]
  - Pollakiuria [Unknown]
  - Dysuria [Unknown]
  - Inappropriate schedule of product administration [Unknown]
  - Therapeutic response shortened [Unknown]

NARRATIVE: CASE EVENT DATE: 20230601
